FAERS Safety Report 14114611 (Version 1)
Quarter: 2017Q4

REPORT INFORMATION
  Report Type: Spontaneous
  Country: US (occurrence: US)
  Receive Date: 20171023
  Receipt Date: 20171023
  Transmission Date: 20180321
  Serious: Yes (Hospitalization)
  Sender: FDA-Public Use
  Company Number: US-LEXICON PHARMACEUTICALS, INC-17-1606-01049

PATIENT
  Age: 59 Year
  Sex: Male

DRUGS (11)
  1. HCTZ [Concomitant]
     Active Substance: HYDROCHLOROTHIAZIDE
  2. FINASTERIDE. [Concomitant]
     Active Substance: FINASTERIDE
  3. SANDOSTATIN [Concomitant]
     Active Substance: OCTREOTIDE ACETATE
  4. NYSTATIN. [Concomitant]
     Active Substance: NYSTATIN
  5. ALFUZOSIN HCL ER [Concomitant]
  6. METOPROL TAR [Concomitant]
  7. AFINITOR [Concomitant]
     Active Substance: EVEROLIMUS
  8. TELOTRISTAT ETHYL [Suspect]
     Active Substance: TELOTRISTAT ETHYL
     Indication: CARCINOID SYNDROME
     Route: 048
     Dates: start: 2017, end: 20171005
  9. SIMVASTATIN. [Concomitant]
     Active Substance: SIMVASTATIN
  10. VITAMIN B12 [Concomitant]
     Active Substance: CYANOCOBALAMIN
  11. POTASSIUM [Concomitant]
     Active Substance: POTASSIUM

REACTIONS (1)
  - Intestinal obstruction [Not Recovered/Not Resolved]

NARRATIVE: CASE EVENT DATE: 20171003
